FAERS Safety Report 6919191-3 (Version None)
Quarter: 2010Q3

REPORT INFORMATION
  Report Type: 
  Country: None (occurrence: None)
  Receive Date: 20100811
  Receipt Date: 20100730
  Transmission Date: 20110219
  Serious: Yes (Other)
  Sender: FDA-Public Use
  Company Number: AU-PFIZER INC-2010086647

PATIENT
  Sex: Female

DRUGS (3)
  1. XALATAN [Suspect]
     Indication: GLAUCOMA
     Dosage: UNK, NOCTE IN ONE EYE
     Route: 047
  2. LANOXIN [Concomitant]
     Indication: HEART RATE IRREGULAR
  3. VOLTAREN [Concomitant]
     Indication: OSTEOARTHRITIS

REACTIONS (5)
  - DIZZINESS [None]
  - EMOTIONAL DISTRESS [None]
  - HEADACHE [None]
  - PARAESTHESIA [None]
  - TINNITUS [None]
